FAERS Safety Report 13464728 (Version 1)
Quarter: 2017Q2

REPORT INFORMATION
  Report Type: Spontaneous
  Country: US (occurrence: US)
  Receive Date: 20170420
  Receipt Date: 20170420
  Transmission Date: 20170830
  Serious: Yes (Other)
  Sender: FDA-Public Use
  Company Number: US-ROCHE-724650

PATIENT
  Age: 19 Year
  Sex: Male
  Weight: 59 kg

DRUGS (9)
  1. ACCUTANE [Suspect]
     Active Substance: ISOTRETINOIN
     Dosage: ALT. 40/80
     Route: 065
  2. CLARAVIS [Suspect]
     Active Substance: ISOTRETINOIN
     Dosage: 3 CAPSULES DAILY ON EVEN DAYS AND 2 CAPSULES DAILY ON ODD DAYS
     Route: 065
  3. ACCUTANE [Suspect]
     Active Substance: ISOTRETINOIN
     Indication: ACNE
     Route: 065
  4. ACCUTANE [Suspect]
     Active Substance: ISOTRETINOIN
     Dosage: 80MG/120 MG ALTERNATING
     Route: 065
     Dates: start: 20040218, end: 20040518
  5. CLARAVIS [Suspect]
     Active Substance: ISOTRETINOIN
     Dosage: 1 CAPSULE ORALLY EVERY DAY ON EVEN DAYS AND 2 DAILY ON ODD DAYS
     Route: 065
  6. CLARAVIS [Suspect]
     Active Substance: ISOTRETINOIN
     Dosage: 2 CAPSULES EVERY DAY ON EVEN DAYS AND 3 CAPSULES EVERY DAY ON ODD DAYS
     Route: 065
  7. ACCUTANE [Suspect]
     Active Substance: ISOTRETINOIN
     Route: 065
  8. CLARAVIS [Suspect]
     Active Substance: ISOTRETINOIN
     Indication: PRODUCT USED FOR UNKNOWN INDICATION
     Route: 065
  9. CLARAVIS [Suspect]
     Active Substance: ISOTRETINOIN
     Route: 065

REACTIONS (13)
  - Cheilitis [Recovered/Resolved]
  - Inflammatory bowel disease [Unknown]
  - Crohn^s disease [Unknown]
  - Irritable bowel syndrome [Unknown]
  - Lip dry [Unknown]
  - Depression [Unknown]
  - Dry skin [Unknown]
  - Epistaxis [Unknown]
  - Road traffic accident [Unknown]
  - Rectal haemorrhage [Unknown]
  - Gastrointestinal injury [Unknown]
  - Colitis ulcerative [Unknown]
  - Blood triglycerides increased [Unknown]

NARRATIVE: CASE EVENT DATE: 200310
